FAERS Safety Report 9274437 (Version 2)
Quarter: 2016Q3

REPORT INFORMATION
  Report Type: Report from Study
  Country: BR (occurrence: BR)
  Receive Date: 20130506
  Receipt Date: 20160726
  Transmission Date: 20161109
  Serious: Yes (Other)
  Sender: FDA-Public Use
  Company Number: BR-AMGEN-BRACT2012001145

PATIENT
  Age: 50 Year
  Sex: Female
  Weight: 75 kg

DRUGS (1)
  1. ENBREL [Suspect]
     Active Substance: ETANERCEPT
     Indication: RHEUMATOID ARTHRITIS
     Dosage: 50 MG, 1X/WEEK
     Route: 058
     Dates: start: 201101, end: 201111

REACTIONS (7)
  - Urinary tract infection [Not Recovered/Not Resolved]
  - Anaemia [Not Recovered/Not Resolved]
  - Dengue fever [Not Recovered/Not Resolved]
  - Wrong technique in product usage process [Unknown]
  - Injection site pain [Unknown]
  - Platelet count decreased [Not Recovered/Not Resolved]
  - Injection site warmth [Unknown]

NARRATIVE: CASE EVENT DATE: 20111021
